FAERS Safety Report 8786747 (Version 1)
Quarter: 2012Q4

REPORT INFORMATION
  Report Type: 
  Country: US (occurrence: US)
  Receive Date: 20120914
  Receipt Date: 20120914
  Transmission Date: 20130627
  Serious: Yes (Other)
  Sender: FDA-Public Use
  Company Number: US-VERTEX PHARMACEUTICAL INC.-AE-2012-010963

PATIENT
  Sex: Male

DRUGS (3)
  1. INCIVEK [Suspect]
     Indication: HEPATITIS C
     Route: 048
     Dates: start: 20120628
  2. PEGINTRON [Concomitant]
     Indication: HEPATITIS C
     Dates: start: 20120628
  3. RIBAVIRIN [Concomitant]
     Indication: HEPATITIS C
     Dates: start: 20120628

REACTIONS (7)
  - Haematochezia [Unknown]
  - Chest pain [Unknown]
  - Arthralgia [Unknown]
  - Faeces discoloured [Unknown]
  - Back pain [Unknown]
  - Dyspepsia [Unknown]
  - Nausea [Unknown]
